FAERS Safety Report 22113172 (Version 1)
Quarter: 2023Q1

REPORT INFORMATION
  Report Type: Spontaneous
  Country: PL (occurrence: PL)
  Receive Date: 20230320
  Receipt Date: 20230320
  Transmission Date: 20230417
  Serious: Yes (Other)
  Sender: FDA-Public Use
  Company Number: PL-MSNLABS-2023MSNLIT00423

PATIENT

DRUGS (2)
  1. PACLITAXEL [Suspect]
     Active Substance: PACLITAXEL
     Indication: Breast cancer
     Route: 065
     Dates: start: 202105, end: 202202
  2. PACLITAXEL [Suspect]
     Active Substance: PACLITAXEL
     Indication: Basal cell carcinoma

REACTIONS (1)
  - Scleroderma-like reaction [Recovering/Resolving]
